FAERS Safety Report 5794603-X (Version None)
Quarter: 2008Q2

REPORT INFORMATION
  Report Type: 
  Country: None (occurrence: None)
  Receive Date: 20080627
  Receipt Date: 20080627
  Transmission Date: 20081010
  Serious: Yes (Hospitalization)
  Sender: FDA-Public Use
  Company Number: None

PATIENT
  Sex: Female
  Weight: 60.782 kg

DRUGS (5)
  1. CISPLATIN [Suspect]
     Indication: OVARIAN CANCER
     Dosage: 130MG IV INFUSION
     Route: 042
     Dates: start: 20071207
  2. LUNESTA [Concomitant]
  3. DECADRON [Concomitant]
  4. PROTONIX [Concomitant]
  5. ZYRTEC [Concomitant]

REACTIONS (2)
  - ANAPHYLACTIC REACTION [None]
  - CONVULSION [None]
